FAERS Safety Report 25999246 (Version 1)
Quarter: 2025Q4

REPORT INFORMATION
  Report Type: Report from Study
  Country: US (occurrence: US)
  Receive Date: 20251105
  Receipt Date: 20251105
  Transmission Date: 20260117
  Serious: Yes (Hospitalization, Other)
  Sender: CELLTRION
  Company Number: US-CELLTRION INC.-2025US018502

PATIENT

DRUGS (3)
  1. INFLIXIMAB-DYYB [Suspect]
     Active Substance: INFLIXIMAB-DYYB
     Indication: Crohn^s disease
     Dosage: 120 MG, ONCE EVERY TWO WEEKS/ONCE EVERY OTHER WEEK
     Route: 058
     Dates: start: 20250514
  2. INFLIXIMAB-DYYB [Suspect]
     Active Substance: INFLIXIMAB-DYYB
     Dosage: 120 MG/QOD
     Route: 058
     Dates: start: 20250514
  3. INFLIXIMAB-DYYB [Suspect]
     Active Substance: INFLIXIMAB-DYYB
     Dosage: 120 MG/ML EVERY TWO WEEKS
     Route: 058
     Dates: start: 20250514

REACTIONS (4)
  - Urticaria [Recovering/Resolving]
  - Injection site erythema [Recovered/Resolved]
  - Drug hypersensitivity [Unknown]
  - Intentional product use issue [Unknown]

NARRATIVE: CASE EVENT DATE: 20250530
